FAERS Safety Report 9075914 (Version 1)
Quarter: 2013Q1

REPORT INFORMATION
  Report Type: Spontaneous
  Country: US (occurrence: US)
  Receive Date: 20130130
  Receipt Date: 20130130
  Transmission Date: 20140127
  Serious: Yes (Other)
  Sender: FDA-Public Use
  Company Number: US-AMGEN-USASP2013004705

PATIENT
  Age: 51 Year
  Sex: Female

DRUGS (3)
  1. NEULASTA [Suspect]
     Indication: NEUTROPENIA
     Dosage: UNK
  2. CYCLOPHOSPHAMIDE [Concomitant]
     Indication: BREAST CANCER
     Dosage: UNK
  3. DOCETAXEL [Concomitant]
     Indication: BREAST CANCER
     Dosage: UNK

REACTIONS (2)
  - Renal failure acute [Recovered/Resolved]
  - Glomerulonephritis [Recovered/Resolved]
